FAERS Safety Report 13506103 (Version 1)
Quarter: 2017Q2

REPORT INFORMATION
  Report Type: Spontaneous
  Country: US (occurrence: US)
  Receive Date: 20170502
  Receipt Date: 20170502
  Transmission Date: 20170830
  Serious: No
  Sender: FDA-Public Use
  Company Number: US-ROCHE-1217809

PATIENT
  Age: 59 Year
  Sex: Male

DRUGS (3)
  1. CARBOPLATIN. [Concomitant]
     Active Substance: CARBOPLATIN
     Indication: NON-SMALL CELL LUNG CANCER METASTATIC
  2. AVASTIN [Suspect]
     Active Substance: BEVACIZUMAB
     Indication: NON-SMALL CELL LUNG CANCER METASTATIC
     Route: 065
  3. ALIMTA [Concomitant]
     Active Substance: PEMETREXED DISODIUM
     Indication: NON-SMALL CELL LUNG CANCER METASTATIC

REACTIONS (1)
  - Toxicity to various agents [Unknown]
